FAERS Safety Report 10204623 (Version 1)
Quarter: 2014Q2

REPORT INFORMATION
  Report Type: Spontaneous
  Country: JP (occurrence: None)
  Receive Date: 20140527
  Receipt Date: 20140527
  Transmission Date: 20141212
  Serious: Yes (Hospitalization, Other)
  Sender: FDA-Public Use
  Company Number: FK201401929

PATIENT
  Age: 68 Year
  Sex: Male

DRUGS (8)
  1. FLUOROURACIL [Suspect]
     Indication: COLON CANCER
     Dates: start: 201001
  2. FLUOROURACIL [Suspect]
     Indication: METASTASES TO LUNG
     Dates: start: 201001
  3. IRINOTECAN [Suspect]
     Indication: COLON CANCER
     Dates: start: 201001
  4. IRINOTECAN [Suspect]
     Indication: METASTASES TO LUNG
     Dates: start: 201001
  5. LEUCOVORIN CALCIUM [Suspect]
     Indication: COLON CANCER
     Dates: start: 201001
  6. LEUCOVORIN CALCIUM [Suspect]
     Indication: METASTASES TO LUNG
     Dates: start: 201001
  7. BEVACIZUMAB (BEVACIZUMAB) (BEVACIZUMAB) [Suspect]
     Indication: COLON CANCER
     Dates: start: 201001
  8. BEVACIZUMAB (BEVACIZUMAB) (BEVACIZUMAB) [Suspect]
     Indication: METASTASES TO LUNG
     Dates: start: 201001

REACTIONS (2)
  - Interstitial lung disease [None]
  - Diarrhoea [None]
